FAERS Safety Report 20299330 (Version 1)
Quarter: 2022Q1

REPORT INFORMATION
  Report Type: Spontaneous
  Country: US (occurrence: None)
  Receive Date: 20220104
  Receipt Date: 20220104
  Transmission Date: 20220423
  Serious: Yes (Disabling)
  Sender: FDA-Public Use
  Company Number: None

PATIENT
  Age: 66 Year
  Sex: Female
  Weight: 67.5 kg

DRUGS (1)
  1. GABAPENTIN [Suspect]
     Active Substance: GABAPENTIN
     Indication: Anxiety
     Route: 048
     Dates: start: 20100601, end: 20210403

REACTIONS (4)
  - Drug withdrawal syndrome [None]
  - General symptom [None]
  - General physical health deterioration [None]
  - Product prescribing issue [None]

NARRATIVE: CASE EVENT DATE: 20170801
